FAERS Safety Report 12222985 (Version 1)
Quarter: 2016Q1

REPORT INFORMATION
  Report Type: Report from Study
  Country: DO (occurrence: DO)
  Receive Date: 20160330
  Receipt Date: 20160330
  Transmission Date: 20160526
  Serious: Yes (Hospitalization)
  Sender: FDA-Public Use
  Company Number: DO-ABBVIE-16K-279-1589276-00

PATIENT
  Sex: Female

DRUGS (1)
  1. HUMIRA [Suspect]
     Active Substance: ADALIMUMAB
     Indication: RHEUMATOID ARTHRITIS
     Route: 058
     Dates: start: 20140304

REACTIONS (11)
  - Skin hyperpigmentation [Unknown]
  - Varicose vein [Unknown]
  - Peripheral artery occlusion [Unknown]
  - White blood cells urine positive [Unknown]
  - Urinary sediment present [Unknown]
  - Urine abnormality [Unknown]
  - Red blood cells urine positive [Unknown]
  - Vasodilatation [Unknown]
  - Peripheral venous disease [Unknown]
  - Telangiectasia [Unknown]
  - Bacterial test positive [Unknown]
